FAERS Safety Report 9705716 (Version 1)
Quarter: 2013Q4

REPORT INFORMATION
  Report Type: Spontaneous
  Country: US (occurrence: US)
  Receive Date: 20131122
  Receipt Date: 20131122
  Transmission Date: 20140711
  Serious: No
  Sender: FDA-Public Use
  Company Number: US-GILEAD-2008-0017853

PATIENT
  Sex: Male
  Weight: 83.91 kg

DRUGS (13)
  1. LETAIRIS [Suspect]
     Indication: PULMONARY ARTERIAL HYPERTENSION
     Route: 048
     Dates: start: 20080609
  2. PRILOSEC [Concomitant]
     Route: 048
  3. CELEBREX [Concomitant]
     Route: 048
  4. ALBUTEROL [Concomitant]
     Route: 055
  5. PREDNISONE [Concomitant]
     Route: 048
  6. VITAMIN C [Concomitant]
     Route: 048
  7. CITRACAL [Concomitant]
     Route: 048
  8. IRON [Concomitant]
     Route: 048
  9. B COMPLEX [Concomitant]
     Route: 048
  10. FLOMAX [Concomitant]
     Route: 048
  11. SPIRIVA [Concomitant]
     Route: 055
  12. ATROVENT [Concomitant]
     Route: 055
  13. MULTIVITAMINS [Concomitant]
     Route: 048

REACTIONS (1)
  - Dyspnoea [Recovering/Resolving]
